FAERS Safety Report 8976760 (Version 1)
Quarter: 2012Q4

REPORT INFORMATION
  Report Type: 
  Country: JP (occurrence: JP)
  Receive Date: 20121220
  Receipt Date: 20121220
  Transmission Date: 20130627
  Serious: Yes (Death)
  Sender: FDA-Public Use
  Company Number: JP-BAYER-2012-123418

PATIENT
  Age: 64 Year
  Sex: Female
  Weight: 58 kg

DRUGS (9)
  1. NEXAVAR [Suspect]
     Indication: CARCINOMA HEPATOCELLULAR
     Dosage: Daily dose 800 mg
     Route: 048
     Dates: start: 20121023
  2. HYPEN [Concomitant]
     Indication: PAIN
     Dosage: Daily dose 400 mg
     Route: 048
  3. LASIX [Concomitant]
     Indication: OEDEMA LOWER LIMB
     Dosage: Daily dose 20 mg
     Route: 048
  4. ALDACTONE A [Concomitant]
     Indication: OEDEMA LOWER LIMB
     Dosage: Daily dose 25 mg
     Route: 048
  5. URSO [Concomitant]
     Indication: HEPATITIS PROPHYLAXIS
     Dosage: Daily dose 300 mg
     Route: 048
  6. MAGLAX [Concomitant]
     Indication: CONSTIPATION
     Dosage: Daily dose 990 mg
     Route: 048
  7. FLAVERIC [Concomitant]
     Indication: COUGH
     Dosage: Daily dose 60 mg
     Route: 048
  8. SAWATENE [Concomitant]
     Dosage: Daily dose 750 mg
     Route: 048
  9. LANSOPRAZOLE [Concomitant]
     Indication: GASTRITIS PROPHYLAXIS
     Dosage: Daily dose 30 mg
     Route: 048

REACTIONS (4)
  - Hepatocellular carcinoma [Fatal]
  - Oesophageal varices haemorrhage [Fatal]
  - Haematemesis [Fatal]
  - Melaena [Fatal]
